FAERS Safety Report 6610769-3 (Version None)
Quarter: 2010Q1

REPORT INFORMATION
  Report Type: 
  Country: None (occurrence: None)
  Receive Date: 20100302
  Receipt Date: 20100219
  Transmission Date: 20100710
  Serious: Yes (Life-Threatening, Hospitalization, Other)
  Sender: FDA-Public Use
  Company Number: B0633400A

PATIENT
  Sex: Male
  Weight: 85 kg

DRUGS (5)
  1. AUGMENTIN [Suspect]
     Indication: BRONCHITIS
     Dosage: 3TAB PER DAY
     Route: 048
     Dates: start: 20100204, end: 20100204
  2. LYSOX [Concomitant]
  3. SYMBICORT [Concomitant]
     Indication: BRONCHITIS
     Route: 055
     Dates: start: 20100201
  4. DAFALGAN [Concomitant]
     Route: 048
     Dates: start: 20100201, end: 20100205
  5. NASENSPRAY RATIOPHARM [Concomitant]
     Route: 045
     Dates: start: 20100201, end: 20100205

REACTIONS (5)
  - ANAPHYLACTIC SHOCK [None]
  - DERMATITIS CONTACT [None]
  - LOSS OF CONSCIOUSNESS [None]
  - RASH [None]
  - VOMITING [None]
